FAERS Safety Report 13899065 (Version 1)
Quarter: 2017Q3

REPORT INFORMATION
  Report Type: Spontaneous
  Country: CA (occurrence: CA)
  Receive Date: 20170824
  Receipt Date: 20170824
  Transmission Date: 20171127
  Serious: Yes (Other)
  Sender: FDA-Public Use
  Company Number: CA-ALKEM LABORATORIES LIMITED-CA-ALKEM-2017-00553

PATIENT
  Age: 49 Year
  Sex: Female

DRUGS (3)
  1. AMLODIPINE BESYLATE. [Suspect]
     Active Substance: AMLODIPINE BESYLATE
     Indication: PRODUCT USED FOR UNKNOWN INDICATION
     Dosage: 150 MG, UNK
     Route: 065
  2. RISPERIDONE. [Suspect]
     Active Substance: RISPERIDONE
     Indication: PRODUCT USED FOR UNKNOWN INDICATION
     Dosage: 6 MG, UNK
     Route: 065
  3. ESCITALOPRAM [Suspect]
     Active Substance: ESCITALOPRAM OXALATE
     Indication: PRODUCT USED FOR UNKNOWN INDICATION
     Dosage: 60 MG, UNK
     Route: 065

REACTIONS (13)
  - Blindness [Not Recovered/Not Resolved]
  - Hypoglycaemia [Recovered/Resolved]
  - Infarction [Recovered/Resolved]
  - Cytotoxic oedema [Recovered/Resolved]
  - Pulmonary oedema [Recovered/Resolved]
  - Intentional overdose [Recovered/Resolved]
  - Retinal ischaemia [Recovered/Resolved]
  - Optic atrophy [Recovered/Resolved]
  - Tachycardia [Recovered/Resolved]
  - Hypokalaemia [Recovered/Resolved]
  - Hypotension [Recovered/Resolved]
  - Optic nerve injury [Recovered/Resolved]
  - Shock [Recovered/Resolved]
